FAERS Safety Report 25817076 (Version 1)
Quarter: 2025Q3

REPORT INFORMATION
  Report Type: Report from Study
  Country: EG (occurrence: EG)
  Receive Date: 20250918
  Receipt Date: 20250918
  Transmission Date: 20251021
  Serious: Yes (Other)
  Sender: ROCHE
  Company Number: EG-002147023-NVSC2025EG142580

PATIENT
  Age: 25 Year
  Sex: Female
  Weight: 65 kg

DRUGS (3)
  1. XOLAIR [Suspect]
     Active Substance: OMALIZUMAB
     Indication: Urticaria
     Route: 058
     Dates: start: 20250822
  2. DEXAMETHASONE [Concomitant]
     Active Substance: DEXAMETHASONE
     Indication: Urticaria
     Route: 065
     Dates: start: 20250822
  3. Alergoliber [Concomitant]
     Indication: Urticaria
     Dosage: 10 MG, TID, TABLET
     Route: 048
     Dates: start: 202506

REACTIONS (9)
  - Dizziness [Recovered/Resolved]
  - Heart rate increased [Recovered/Resolved]
  - Feeling hot [Recovered/Resolved]
  - Limb discomfort [Recovered/Resolved]
  - Dyspnoea [Recovered/Resolved]
  - Pyrexia [Recovered/Resolved]
  - Fatigue [Recovered/Resolved]
  - Urticaria [Not Recovered/Not Resolved]
  - Off label use [Unknown]

NARRATIVE: CASE EVENT DATE: 20250822
